FAERS Safety Report 14290029 (Version 2)
Quarter: 2018Q1

REPORT INFORMATION
  Report Type: Report from Study
  Country: US (occurrence: US)
  Receive Date: 20171215
  Receipt Date: 20180316
  Transmission Date: 20180509
  Serious: Yes (Hospitalization, Other)
  Sender: FDA-Public Use
  Company Number: US-UCBSA-2017049937

PATIENT
  Age: 80 Year
  Sex: Male
  Weight: 80 kg

DRUGS (1)
  1. ROTIGOTINE [Suspect]
     Active Substance: ROTIGOTINE
     Indication: PARKINSON^S DISEASE
     Dosage: 8 MG, ONCE DAILY (QD)
     Route: 062
     Dates: start: 201610

REACTIONS (4)
  - Sepsis [Recovered/Resolved]
  - Volvulus [Recovered/Resolved]
  - Blood sodium decreased [Recovered/Resolved]
  - Urinary tract infection [Recovered/Resolved]

NARRATIVE: CASE EVENT DATE: 20171107
